FAERS Safety Report 18071078 (Version 1)
Quarter: 2020Q3

REPORT INFORMATION
  Report Type: Spontaneous
  Country: US (occurrence: US)
  Receive Date: 20200724
  Receipt Date: 20200724
  Transmission Date: 20201103
  Serious: No
  Sender: FDA-Public Use
  Company Number: None

PATIENT
  Age: 49 Year
  Sex: Male
  Weight: 89.1 kg

DRUGS (11)
  1. REMDESIVIR (EUA) [Suspect]
     Active Substance: REMDESIVIR
     Indication: COVID-19
     Route: 042
     Dates: start: 20200721, end: 20200723
  2. DEXMEDETOMIDINE IN NS 400 MCG/100 ML (4 MCG/ML) IV PREMIX (PRECEDEX IN [Concomitant]
     Dates: start: 20200720
  3. FENTANYL (PF) IN NS 10 MCG/ML IV SOLN [Concomitant]
     Dates: start: 20200721
  4. HEPARIN (PORCINE) IN D5W 25,000 UNIT/250 ML(100 UNIT/ML) IV PREMIX [Concomitant]
     Dates: start: 20200721
  5. PHENYLEPHRINE 100 MG IN SODIUM CHLORIDE 0.9% 250 ML IV SOLN [Concomitant]
     Dates: start: 20200722, end: 20200723
  6. IPRATROPIUM 17 MCG/ACTUATION MDI 2 PUFF (ATROVENT HFA) [Concomitant]
     Dates: start: 20200721
  7. METRONIDAZOLE IN NACL IV PREMIX 500 MG (FLAGYL) [Concomitant]
     Dates: start: 20200720
  8. MIDAZOLAM IN NS 1 MG/ML IV SOLN [Concomitant]
     Dates: start: 20200722
  9. ASCORBIC ACID IVPB 1,500 MG [Concomitant]
     Dates: start: 20200720
  10. INSULIN REGULAR HUMAN SLIDING SCALE INJ (HUMULIN R/NOVOLIN R) [Concomitant]
     Dates: start: 20200721
  11. MELATONIN RAP DIS TABLET 10 MG [Concomitant]
     Dates: start: 20200722

REACTIONS (2)
  - Alanine aminotransferase increased [None]
  - Liver function test increased [None]

NARRATIVE: CASE EVENT DATE: 20200723
